FAERS Safety Report 6385671-5 (Version None)
Quarter: 2009Q4

REPORT INFORMATION
  Report Type: 
  Country: None (occurrence: None)
  Receive Date: 20091002
  Receipt Date: 20081010
  Transmission Date: 20100525
  Serious: Yes (Hospitalization)
  Sender: FDA-Public Use
  Company Number: US-ASTRAZENECA-2008UW22294

PATIENT
  Age: 49 Year
  Sex: Female
  Weight: 97.5 kg

DRUGS (7)
  1. ARIMIDEX [Suspect]
     Indication: BREAST CANCER FEMALE
     Route: 048
     Dates: start: 20060501
  2. LEVOTHYROXINE SODIUM [Concomitant]
     Route: 048
  3. LAMOTRIGINE [Concomitant]
     Route: 048
     Dates: start: 20080801
  4. TEMAZEPAM [Concomitant]
     Indication: SLEEP DISORDER
     Route: 048
  5. ZYRTEC [Concomitant]
     Indication: HYPERSENSITIVITY
     Route: 048
  6. DIVALPROEX SODIUM [Concomitant]
     Route: 048
  7. PRILOSEC [Concomitant]
     Route: 048

REACTIONS (7)
  - ARTHRALGIA [None]
  - DEPRESSION [None]
  - GASTROOESOPHAGEAL REFLUX DISEASE [None]
  - INSOMNIA [None]
  - OEDEMA PERIPHERAL [None]
  - SALIVARY HYPERSECRETION [None]
  - WEIGHT INCREASED [None]
